FAERS Safety Report 24277134 (Version 2)
Quarter: 2024Q3

REPORT INFORMATION
  Report Type: Spontaneous
  Country: US (occurrence: US)
  Receive Date: 20240903
  Receipt Date: 20240903
  Transmission Date: 20241017
  Serious: No
  Sender: SANDOZ
  Company Number: US-SANDOZ-SDZ2024US076459

PATIENT
  Sex: Female

DRUGS (2)
  1. PREDNISOLONE ACETATE [Suspect]
     Active Substance: PREDNISOLONE ACETATE
     Indication: Product used for unknown indication
     Dosage: 1% 10ML LDP
     Route: 065
     Dates: start: 20240822
  2. Antibiotic eye drops [Concomitant]
     Indication: Product used for unknown indication
     Dosage: UNK
     Route: 065
     Dates: start: 20240822

REACTIONS (5)
  - Dry eye [Unknown]
  - Eye pruritus [Unknown]
  - Superficial injury of eye [Unknown]
  - Abnormal sensation in eye [Unknown]
  - Eye irritation [Unknown]
